FAERS Safety Report 14479792 (Version 1)
Quarter: 2018Q1

REPORT INFORMATION
  Report Type: Other
  Country: TN (occurrence: TN)
  Receive Date: 20180202
  Receipt Date: 20180202
  Transmission Date: 20180509
  Serious: No
  Sender: FDA-Public Use
  Company Number: TN-B. BRAUN MEDICAL INC.-2041279

PATIENT
  Age: 23 Year
  Sex: Female

DRUGS (5)
  1. ANTIEMETIC [Concomitant]
  2. POTASSIUM [Concomitant]
     Active Substance: POTASSIUM
  3. THIAMINE. [Concomitant]
     Active Substance: THIAMINE
  4. DEXTROSE AND SODIUM CHLORIDE [Suspect]
     Active Substance: DEXTROSE MONOHYDRATE\SODIUM CHLORIDE
     Indication: FLUID REPLACEMENT
     Route: 042
  5. PROTON PUMP INHIBITORS [Concomitant]
     Active Substance: UNSPECIFIED INGREDIENT

REACTIONS (1)
  - Wernicke^s encephalopathy [Recovered/Resolved]
